FAERS Safety Report 5520587-5 (Version None)
Quarter: 2007Q4

REPORT INFORMATION
  Report Type: 
  Country: None (occurrence: None)
  Receive Date: 20071119
  Receipt Date: 20071105
  Transmission Date: 20080405
  Serious: Yes (Death, Other)
  Sender: FDA-Public Use
  Company Number: US-PFIZER INC-2007080053

PATIENT
  Sex: Female
  Weight: 71.2 kg

DRUGS (7)
  1. CHANTIX [Suspect]
     Indication: SMOKING CESSATION THERAPY
  2. ACTONEL [Concomitant]
     Route: 048
  3. DETROL LA [Concomitant]
     Route: 048
  4. ALL OTHER THERAPEUTIC PRODUCTS [Concomitant]
     Route: 048
  5. VYTORIN [Concomitant]
     Route: 048
  6. CALCIUM [Concomitant]
     Route: 048
  7. VITAMIN CAP [Concomitant]
     Route: 048

REACTIONS (4)
  - COMPLETED SUICIDE [None]
  - DRUG INEFFECTIVE [None]
  - DRUG INTERACTION [None]
  - DRUG INTOLERANCE [None]
